FAERS Safety Report 10232044 (Version 1)
Quarter: 2014Q2

REPORT INFORMATION
  Report Type: Spontaneous
  Country: US (occurrence: US)
  Receive Date: 20140612
  Receipt Date: 20140612
  Transmission Date: 20141212
  Serious: No
  Sender: FDA-Public Use
  Company Number: US-BIOGENIDEC-2014BI049306

PATIENT
  Age: 66 Year
  Sex: Male

DRUGS (8)
  1. TECFIDERA [Suspect]
     Indication: MULTIPLE SCLEROSIS
     Route: 048
  2. POTASSIUM SORBATE [Concomitant]
  3. SIMVASTATIN [Concomitant]
  4. LISINOPRIL [Concomitant]
  5. GLUMETZA [Concomitant]
  6. VITAMIN D [Concomitant]
  7. GLIPIZIDE [Concomitant]
  8. CIALIS [Concomitant]

REACTIONS (1)
  - Lipoma [Unknown]
